FAERS Safety Report 9810637 (Version 1)
Quarter: 2014Q1

REPORT INFORMATION
  Report Type: Spontaneous
  Country: US (occurrence: US)
  Receive Date: 20140110
  Receipt Date: 20140110
  Transmission Date: 20141002
  Serious: Yes (Hospitalization, Other)
  Sender: FDA-Public Use
  Company Number: US-SANOFI-AVENTIS-2013SA090139

PATIENT
  Age: 73 Year
  Sex: Male
  Weight: 95 kg

DRUGS (21)
  1. PLAVIX [Suspect]
     Indication: CARDIAC DISORDER
     Route: 065
     Dates: end: 201305
  2. HUMULIN [Concomitant]
  3. HYTRIN [Concomitant]
  4. IMDUR [Concomitant]
  5. RANEXA [Concomitant]
  6. LOPRESSOR [Concomitant]
  7. ALL OTHER THERAPEUTIC PRODUCTS [Concomitant]
  8. STOOL SOFTENER [Concomitant]
  9. HYDRALAZINE [Concomitant]
  10. GLIPIZIDE [Concomitant]
  11. WELLBUTRIN [Concomitant]
  12. IRON [Concomitant]
  13. MORPHINE [Concomitant]
  14. PANTOPRAZOLE [Concomitant]
  15. FENOFIBRATE [Concomitant]
  16. SYNTHROID [Concomitant]
  17. LISINOPRIL [Concomitant]
  18. NORCO [Concomitant]
  19. LIPITOR [Concomitant]
  20. LASIX [Concomitant]
  21. ASPIRIN [Concomitant]

REACTIONS (4)
  - Myocardial infarction [Unknown]
  - Drug ineffective [Unknown]
  - Device occlusion [Unknown]
  - Angina pectoris [Recovered/Resolved]
